FAERS Safety Report 8758235 (Version 1)
Quarter: 2012Q4

REPORT INFORMATION
  Report Type: 
  Country: CA (occurrence: CA)
  Receive Date: 20120829
  Receipt Date: 20120829
  Transmission Date: 20130627
  Serious: Yes (Other)
  Sender: FDA-Public Use
  Company Number: CA-BAYER-2012-088880

PATIENT
  Sex: Female

DRUGS (1)
  1. CANESTEN 1 COMFORTAB COMBI-PAK,CANESTEN COMFORTAB COMBI-PAK 1 [Suspect]

REACTIONS (1)
  - Vaginal haemorrhage [None]
